FAERS Safety Report 10219526 (Version 1)
Quarter: 2014Q2

REPORT INFORMATION
  Report Type: Spontaneous
  Country: US (occurrence: US)
  Receive Date: 20140605
  Receipt Date: 20140605
  Transmission Date: 20141212
  Serious: Yes (Hospitalization)
  Sender: FDA-Public Use
  Company Number: US-GLAXOSMITHKLINE-A1074946A

PATIENT
  Age: 83 Year
  Sex: Male

DRUGS (6)
  1. ADVAIR [Suspect]
     Indication: CHRONIC OBSTRUCTIVE PULMONARY DISEASE
     Dosage: 1PUFF TWICE PER DAY
     Route: 055
  2. SPIRIVA [Concomitant]
  3. TRAMADOL [Concomitant]
  4. OMEPRAZOLE [Concomitant]
  5. CLONAZEPAM [Concomitant]
  6. JALYN [Concomitant]

REACTIONS (3)
  - Non-Hodgkin^s lymphoma [Unknown]
  - Hernia [Unknown]
  - Cholecystectomy [Unknown]
